FAERS Safety Report 13872260 (Version 1)
Quarter: 2017Q3

REPORT INFORMATION
  Report Type: Spontaneous
  Country: IT (occurrence: IT)
  Receive Date: 20170816
  Receipt Date: 20170816
  Transmission Date: 20171127
  Serious: Yes (Hospitalization)
  Sender: FDA-Public Use
  Company Number: IT-JNJFOC-20170812455

PATIENT
  Age: 91 Year
  Sex: Female

DRUGS (5)
  1. XARELTO [Suspect]
     Active Substance: RIVAROXABAN
     Indication: ATRIAL FIBRILLATION
     Route: 048
     Dates: start: 20170101, end: 20170130
  2. LANSOX [Concomitant]
     Active Substance: LANSOPRAZOLE
     Route: 065
  3. SERTRALINE [Concomitant]
     Active Substance: SERTRALINE HYDROCHLORIDE
     Route: 065
  4. KARVEA [Concomitant]
     Active Substance: IRBESARTAN
     Route: 065
  5. LASIX [Concomitant]
     Active Substance: FUROSEMIDE
     Route: 065

REACTIONS (5)
  - Aphasia [Unknown]
  - Confusional state [Unknown]
  - Headache [Unknown]
  - Amnesia [Unknown]
  - Anaemia [Unknown]

NARRATIVE: CASE EVENT DATE: 20170130
